FAERS Safety Report 8377585-6 (Version None)
Quarter: 2012Q2

REPORT INFORMATION
  Report Type: 
  Country: None (occurrence: None)
  Receive Date: 20120522
  Receipt Date: 20120511
  Transmission Date: 20120825
  Serious: Yes (Congenital Anomaly, Other)
  Sender: FDA-Public Use
  Company Number: DE-TEVA-338138GER

PATIENT
  Age: 0 Year
  Sex: Female

DRUGS (7)
  1. SEROQUEL [Suspect]
     Route: 064
  2. GYNVITAL [Concomitant]
     Route: 064
  3. PROPRANOLOL [Concomitant]
     Route: 064
  4. CLOMIPRAMINE HCL [Suspect]
     Route: 064
  5. MELPERON [Concomitant]
     Route: 064
  6. LEVOTHYROXIN THYROXIN [Concomitant]
     Route: 064
  7. LYRICA [Concomitant]
     Route: 064

REACTIONS (4)
  - CONVULSION [None]
  - ATRIAL SEPTAL DEFECT [None]
  - MYOCLONUS [None]
  - FEEDING DISORDER NEONATAL [None]
